FAERS Safety Report 5163129-9 (Version None)
Quarter: 2006Q4

REPORT INFORMATION
  Report Type: 
  Country: None (occurrence: None)
  Receive Date: 20061204
  Receipt Date: 20061129
  Transmission Date: 20070319
  Serious: Yes (Death)
  Sender: FDA-Public Use
  Company Number: JP-JNJFOC-20061106690

PATIENT
  Age: 79 Year
  Sex: Female

DRUGS (3)
  1. LEUSTATIN [Suspect]
     Indication: T-CELL PROLYMPHOCYTIC LEUKAEMIA
     Route: 042
  2. ENDOXAN [Concomitant]
     Indication: T-CELL PROLYMPHOCYTIC LEUKAEMIA
  3. PREDONINE [Concomitant]
     Indication: T-CELL PROLYMPHOCYTIC LEUKAEMIA

REACTIONS (4)
  - CEREBRAL HAEMORRHAGE [None]
  - NEUTROPENIA [None]
  - SEPSIS [None]
  - THROMBOCYTOPENIA [None]
